FAERS Safety Report 4989628-8 (Version None)
Quarter: 2006Q2

REPORT INFORMATION
  Report Type: 
  Country: None (occurrence: None)
  Receive Date: 20060502
  Receipt Date: 20050404
  Transmission Date: 20061013
  Serious: Yes (Hospitalization)
  Sender: FDA-Public Use
  Company Number: US-MERCK-0504USA00700

PATIENT
  Age: 49 Year
  Sex: Male
  Weight: 109 kg

DRUGS (5)
  1. VIOXX [Suspect]
     Indication: BACK PAIN
     Route: 048
     Dates: end: 20031001
  2. VIOXX [Suspect]
     Route: 048
  3. VIOXX [Suspect]
     Route: 048
  4. VIOXX [Suspect]
     Route: 048
  5. TYLENOL (CAPLET) [Concomitant]
     Route: 065

REACTIONS (14)
  - ANGINA PECTORIS [None]
  - ANGINA UNSTABLE [None]
  - ARTERIOSCLEROSIS CORONARY ARTERY [None]
  - BLOOD TRIGLYCERIDES INCREASED [None]
  - BRONCHITIS [None]
  - CORONARY ARTERY DISEASE [None]
  - COUGH [None]
  - DIABETES MELLITUS NON-INSULIN-DEPENDENT [None]
  - HYPERTENSION [None]
  - ISCHAEMIA [None]
  - MYOCARDIAL INFARCTION [None]
  - PNEUMONIA [None]
  - PRESCRIBED OVERDOSE [None]
  - TACHYCARDIA [None]
